FAERS Safety Report 6261936-2 (Version None)
Quarter: 2009Q3

REPORT INFORMATION
  Report Type: 
  Country: None (occurrence: None)
  Receive Date: 20090709
  Receipt Date: 20090304
  Transmission Date: 20100115
  Serious: Yes (Life-Threatening, Hospitalization)
  Sender: FDA-Public Use
  Company Number: B0582794A

PATIENT
  Age: 73 Year
  Sex: Female
  Weight: 65 kg

DRUGS (7)
  1. OMACOR [Suspect]
     Dosage: 1000MG PER DAY
     Route: 048
     Dates: start: 20040911, end: 20050922
  2. ASPIRIN [Concomitant]
  3. BETA BLOCKERS [Concomitant]
  4. ACE INHIBITORS [Concomitant]
  5. DIURETICS [Concomitant]
  6. CLOPIDOGREL [Concomitant]
  7. ANTIDIABETIC [Concomitant]
     Route: 048

REACTIONS (1)
  - DUODENAL ULCER HAEMORRHAGE [None]
